FAERS Safety Report 19174071 (Version 1)
Quarter: 2021Q2

REPORT INFORMATION
  Report Type: Spontaneous
  Country: ES (occurrence: ES)
  Receive Date: 20210423
  Receipt Date: 20210423
  Transmission Date: 20210717
  Serious: Yes (Death, Hospitalization, Other)
  Sender: FDA-Public Use
  Company Number: ES-CLOVIS ONCOLOGY-CLO-2020-001154

PATIENT

DRUGS (4)
  1. RUBRACA [Suspect]
     Active Substance: RUCAPARIB CAMSYLATE
     Dosage: 1050 MILLIGRAM, QD
     Dates: start: 20200508, end: 20200527
  2. RUBRACA [Suspect]
     Active Substance: RUCAPARIB CAMSYLATE
     Dosage: 400 MILLIGRAM, BID
     Dates: start: 20190827, end: 20210115
  3. RUBRACA [Suspect]
     Active Substance: RUCAPARIB CAMSYLATE
     Dosage: 800 MILLIGRAM, QD
     Dates: start: 20200605
  4. RUBRACA [Suspect]
     Active Substance: RUCAPARIB CAMSYLATE
     Indication: GENE MUTATION IDENTIFICATION TEST POSITIVE
     Dosage: 1200 MILLIGRAM, QD
     Dates: start: 20190927, end: 20200422

REACTIONS (4)
  - Myelodysplastic syndrome [Not Recovered/Not Resolved]
  - Death [Fatal]
  - Thrombocytopenia [Not Recovered/Not Resolved]
  - Cerebral haemorrhage [Unknown]

NARRATIVE: CASE EVENT DATE: 20200522
